FAERS Safety Report 12630178 (Version 1)
Quarter: 2016Q3

REPORT INFORMATION
  Report Type: Spontaneous
  Country: US (occurrence: US)
  Receive Date: 20160808
  Receipt Date: 20160808
  Transmission Date: 20161109
  Serious: Yes (Hospitalization)
  Sender: FDA-Public Use
  Company Number: US-DEPOMED, INC.-US-2016DEP011599

PATIENT

DRUGS (2)
  1. GRALISE [Suspect]
     Active Substance: GABAPENTIN
     Indication: SCIATIC NERVE INJURY
     Dosage: 300 MG, QD WITH EVENING MEALS, TITRATED UP TO 1500 MG
     Route: 048
     Dates: start: 20160710, end: 20160721
  2. GRALISE [Suspect]
     Active Substance: GABAPENTIN
     Dosage: 1500 MG, QD
     Route: 048
     Dates: start: 20160726

REACTIONS (2)
  - Blood pressure abnormal [Unknown]
  - Product use issue [Not Recovered/Not Resolved]

NARRATIVE: CASE EVENT DATE: 20160710
